FAERS Safety Report 25066718 (Version 2)
Quarter: 2025Q2

REPORT INFORMATION
  Report Type: Spontaneous
  Country: CH (occurrence: CH)
  Receive Date: 20250312
  Receipt Date: 20250617
  Transmission Date: 20250717
  Serious: Yes (Hospitalization, Other)
  Sender: RANBAXY
  Company Number: CH-SUN PHARMACEUTICAL INDUSTRIES LTD-2025R1-497993

PATIENT
  Age: 12 Year
  Sex: Female

DRUGS (4)
  1. FLECAINIDE [Suspect]
     Active Substance: FLECAINIDE
     Indication: Ventricular tachycardia
     Dosage: 75 MILLIGRAM, BID
     Route: 065
  2. FLECAINIDE [Suspect]
     Active Substance: FLECAINIDE
     Dosage: 150 MILLIGRAM, BID
     Route: 065
  3. NADOLOL [Concomitant]
     Active Substance: NADOLOL
     Indication: Ventricular tachycardia
     Dosage: 80 MILLIGRAM, DAILY
     Route: 065
  4. NADOLOL [Concomitant]
     Active Substance: NADOLOL
     Dosage: 100 MILLIGRAM, DAILY
     Route: 065

REACTIONS (4)
  - Ventricular tachycardia [Unknown]
  - Palpitations [Unknown]
  - Tachycardia [Unknown]
  - Supraventricular tachycardia [Unknown]
